FAERS Safety Report 5371522-4 (Version None)
Quarter: 2007Q2

REPORT INFORMATION
  Report Type: 
  Country: None (occurrence: None)
  Receive Date: 20070618
  Receipt Date: 20070213
  Transmission Date: 20071010
  Serious: Yes (Other)
  Sender: FDA-Public Use
  Company Number: PHEH2007US01541

PATIENT
  Age: 46 Year
  Sex: Female
  Weight: 68 kg

DRUGS (6)
  1. GLEEVEC [Suspect]
     Dosage: 400 MG, QD, ORAL; NO TREATMENT; 300 MG, QD, ORAL
     Route: 048
     Dates: start: 20060801, end: 20061230
  2. GLEEVEC [Suspect]
     Dosage: 400 MG, QD, ORAL; NO TREATMENT; 300 MG, QD, ORAL
     Route: 048
     Dates: start: 20061230, end: 20070106
  3. GLEEVEC [Suspect]
     Dosage: 400 MG, QD, ORAL; NO TREATMENT; 300 MG, QD, ORAL
     Route: 048
     Dates: start: 20070106
  4. HYDROXYCHLOROQINE (HYDROXYCHLOROQUINE) [Concomitant]
  5. ACETYLSALICYLIC ACID SRT [Concomitant]
  6. CALCIUM (CALCIUM) [Concomitant]

REACTIONS (4)
  - EMOTIONAL DISTRESS [None]
  - LEUKOPENIA [None]
  - PERIORBITAL OEDEMA [None]
  - RASH GENERALISED [None]
